FAERS Safety Report 18150172 (Version 1)
Quarter: 2020Q3

REPORT INFORMATION
  Report Type: Spontaneous
  Country: US (occurrence: US)
  Receive Date: 20200814
  Receipt Date: 20200814
  Transmission Date: 20201103
  Serious: Yes (Other)
  Sender: FDA-Public Use
  Company Number: US-PFIZER INC-2020309508

PATIENT
  Age: 10 Year
  Sex: Male

DRUGS (9)
  1. ETOMIDATE. [Suspect]
     Active Substance: ETOMIDATE
     Indication: ANAESTHESIA
     Dosage: 0.3 MG/KG
     Route: 042
  2. FENTANYL. [Concomitant]
     Active Substance: FENTANYL
     Dosage: UNK, AS NEEDED
     Route: 042
  3. NITROUS OXIDE. [Concomitant]
     Active Substance: NITROUS OXIDE
     Dosage: UNK,MAINTAINED WITH 70%
  4. METOCURINE IODIDE. [Concomitant]
     Active Substance: METOCURINE IODIDE
     Indication: ANAESTHESIA
     Dosage: 0.018 MG/KG
     Route: 042
  5. METOCURINE IODIDE. [Concomitant]
     Active Substance: METOCURINE IODIDE
     Dosage: UNK (TITRATED)
     Route: 042
  6. NITROUS OXIDE. [Concomitant]
     Active Substance: NITROUS OXIDE
     Dosage: UNK (EDUCED TO 50%)
  7. FENTANYL. [Concomitant]
     Active Substance: FENTANYL
     Indication: ANAESTHESIA
     Dosage: 0.005 MG/KG, AFTER ADMINISTRATION OF METOCURINE
     Route: 042
  8. ETOMIDATE. [Suspect]
     Active Substance: ETOMIDATE
     Dosage: 0.2 MG/KG
     Route: 042
  9. SUCCINYLCHOLINE [SUXAMETHONIUM CHLORIDE] [Concomitant]
     Active Substance: SUCCINYLCHOLINE
     Dosage: 1.0 MG/KG
     Route: 042

REACTIONS (1)
  - Epilepsy [Unknown]
